FAERS Safety Report 10186485 (Version 2)
Quarter: 2014Q2

REPORT INFORMATION
  Report Type: Spontaneous
  Country: US (occurrence: US)
  Receive Date: 20140521
  Receipt Date: 20140521
  Transmission Date: 20141212
  Serious: Yes (Other)
  Sender: FDA-Public Use
  Company Number: US-PFIZER INC-HQ0953325FEB2002

PATIENT
  Age: 68 Year
  Sex: Female

DRUGS (5)
  1. CORDARONE [Suspect]
     Indication: ATRIAL FIBRILLATION
     Dosage: 200.0 MG, 1X/DAY
     Route: 048
     Dates: start: 2000
  2. AZITHROMYCIN [Interacting]
     Indication: PNEUMONIA
     Dosage: 500 MG 1 DAY / 250 MG 4 DAYS
     Route: 048
  3. ASPIRIN ^BAYER^ [Concomitant]
     Route: 048
  4. ENALAPRIL [Concomitant]
     Route: 048
  5. FUROSEMIDE [Concomitant]
     Route: 048

REACTIONS (3)
  - Drug interaction [Recovered/Resolved]
  - Electrocardiogram QT prolonged [Recovered/Resolved]
  - Sinus bradycardia [Recovered/Resolved]
